FAERS Safety Report 19405321 (Version 2)
Quarter: 2021Q2

REPORT INFORMATION
  Report Type: Spontaneous
  Country: NL (occurrence: NL)
  Receive Date: 20210611
  Receipt Date: 20210618
  Transmission Date: 20210717
  Serious: Yes (Hospitalization)
  Sender: FDA-Public Use
  Company Number: NL-TEVA-2021-NL-1920728

PATIENT
  Sex: Female
  Weight: 55 kg

DRUGS (5)
  1. MONTELUKAST TABLET OMHULD 10MG / SINGULAIR TABLET OMHULD 10MG [Concomitant]
     Dosage: THERAPY START DATE ASKU, THERAPY END DATE ASKU, 10 MG
  2. CLEMASTINE TABLET 1MG / BRAND NAME NOT SPECIFIED [Concomitant]
     Dosage: THERAPY START DATE ASKU, THERAPY END DATE ASKU, 1 MG
  3. ZOLPIDEM TABLET 10MG / STILNOCT TABLET FILMOMHULD 10MG [Concomitant]
     Dosage: 10 MG ,THERAPY START DATE ASKU, THERAPY END DATE ASKU
  4. QUETIAPINE TABLET FO  25MG / BRAND NAME NOT SPECIFIED [Suspect]
     Active Substance: QUETIAPINE
     Indication: INSOMNIA
     Dosage: 25 MILLIGRAM DAILY;
     Route: 065
     Dates: start: 20210401, end: 20210414
  5. SALMETEROL/FLUTICASON AEROSOL 25/250UG/DO / SERETIDE AEROSOL 25/250MCG [Concomitant]
     Dosage: AEROSOL, 25/250 UG/DOSE,THERAPY START DATE ASKU, THERAPY END DATE ASKU

REACTIONS (9)
  - Restlessness [Recovered/Resolved]
  - Hyperhidrosis [Recovered/Resolved]
  - Anxiety [Recovered/Resolved]
  - Headache [Recovered/Resolved]
  - Feeling abnormal [Recovered/Resolved]
  - Suicidal ideation [Recovered/Resolved]
  - Panic attack [Recovered/Resolved]
  - Tremor [Recovered/Resolved]
  - Weight increased [Recovered/Resolved]
